FAERS Safety Report 14624085 (Version 1)
Quarter: 2018Q1

REPORT INFORMATION
  Report Type: Spontaneous
  Country: GB (occurrence: GB)
  Receive Date: 20180312
  Receipt Date: 20180312
  Transmission Date: 20180509
  Serious: Yes (Other)
  Sender: FDA-Public Use
  Company Number: GB-TEVA-2018-GB-868039

PATIENT
  Age: 54 Year

DRUGS (1)
  1. LACTULOSE. [Suspect]
     Active Substance: LACTULOSE
     Dosage: 100 ML DAILY;
     Route: 065

REACTIONS (4)
  - Flatulence [Unknown]
  - Muscle spasms [Unknown]
  - Pain [Unknown]
  - Drug prescribing error [Unknown]
